FAERS Safety Report 12775813 (Version 2)
Quarter: 2016Q4

REPORT INFORMATION
  Report Type: Report from Study
  Country: US (occurrence: US)
  Receive Date: 20160923
  Receipt Date: 20161017
  Transmission Date: 20170207
  Serious: Yes (Hospitalization)
  Sender: FDA-Public Use
  Company Number: US-PFIZER INC-2016434247

PATIENT
  Age: 78 Year
  Sex: Male
  Weight: 77 kg

DRUGS (8)
  1. CALCIUM CARBONATE-VITAMIN D3 [Concomitant]
     Dosage: 1500 MG (600 MG CALCIUM)-400 UNIT, QD
  2. TAMSULOSIN [Concomitant]
     Active Substance: TAMSULOSIN
     Dosage: 0.4 TWICE DAILY
  3. CASODEX [Concomitant]
     Active Substance: BICALUTAMIDE
     Dosage: 50 MG, QD
  4. BUPROBAN [Concomitant]
     Active Substance: BUPROPION HYDROCHLORIDE
     Dosage: 150 MG, 12 HR QD
  5. PROZAC [Concomitant]
     Active Substance: FLUOXETINE HYDROCHLORIDE
     Dosage: 10 MG, QD
  6. HYDRODIURIL [Concomitant]
     Active Substance: HYDROCHLOROTHIAZIDE
     Dosage: 25 MG, QD
  7. PALBOCICLIB [Suspect]
     Active Substance: PALBOCICLIB
     Indication: PROSTATE CANCER METASTATIC
     Dosage: 125 MG, QD
     Route: 048
     Dates: start: 20140807
  8. NEURONTIN [Concomitant]
     Active Substance: GABAPENTIN
     Dosage: 600 MG, 2X/DAY
     Route: 048

REACTIONS (1)
  - Aortic valve disease [Recovered/Resolved]

NARRATIVE: CASE EVENT DATE: 20160912
